FAERS Safety Report 8657570 (Version 3)
Quarter: 2012Q4

REPORT INFORMATION
  Report Type: 
  Country: US (occurrence: US)
  Receive Date: 20120710
  Receipt Date: 20120924
  Transmission Date: 20130627
  Serious: Yes (Other)
  Sender: FDA-Public Use
  Company Number: US-BAYER-2012-066477

PATIENT
  Age: 26 Year
  Sex: Female

DRUGS (2)
  1. MIRENA [Suspect]
     Indication: CONTRACEPTION
     Dosage: 20 mcg/24hr, CONT
     Route: 015
     Dates: start: 20101123, end: 20111206
  2. MULTIVITAMINS [Concomitant]
     Indication: VITAMIN SUPPLEMENTATION
     Dosage: 1 UNK, QD
     Route: 048

REACTIONS (5)
  - Vaginal haemorrhage [Recovered/Resolved]
  - Device dislocation [None]
  - Device dislocation [None]
  - Pelvic pain [None]
  - Menorrhagia [None]
